FAERS Safety Report 5097142-7 (Version None)
Quarter: 2006Q3

REPORT INFORMATION
  Report Type: 
  Country: None (occurrence: None)
  Receive Date: 20060824
  Receipt Date: 20060809
  Transmission Date: 20061208
  Serious: Yes (Other)
  Sender: FDA-Public Use
  Company Number: CHNY2006JP02140

PATIENT
  Age: 38 Year
  Sex: Female
  Weight: 60 kg

DRUGS (1)
  1. NICOTINE [Suspect]
     Indication: SMOKING CESSATION THERAPY

REACTIONS (9)
  - APPLICATION SITE ERYTHEMA [None]
  - ERYTHEMA [None]
  - HOT FLUSH [None]
  - LOCAL SWELLING [None]
  - MALAISE [None]
  - OEDEMA PERIPHERAL [None]
  - PRURITUS [None]
  - RASH [None]
  - SWELLING FACE [None]
